FAERS Safety Report 11891700 (Version 2)
Quarter: 2016Q1

REPORT INFORMATION
  Report Type: Spontaneous
  Country: US (occurrence: US)
  Receive Date: 20160106
  Receipt Date: 20160211
  Transmission Date: 20160526
  Serious: Yes (Other)
  Sender: FDA-Public Use
  Company Number: US-SHIRE-US201516888

PATIENT
  Age: 18 Year
  Sex: Female
  Weight: 54.42 kg

DRUGS (8)
  1. VYVANSE [Suspect]
     Active Substance: LISDEXAMFETAMINE DIMESYLATE
     Indication: ATTENTION DEFICIT/HYPERACTIVITY DISORDER
  2. PROZAC [Concomitant]
     Active Substance: FLUOXETINE HYDROCHLORIDE
     Indication: OBSESSIVE-COMPULSIVE DISORDER
  3. LAMOTRIGINE. [Concomitant]
     Active Substance: LAMOTRIGINE
     Indication: OBSESSIVE-COMPULSIVE DISORDER
  4. LAMOTRIGINE. [Concomitant]
     Active Substance: LAMOTRIGINE
     Indication: DEPRESSION
     Dosage: 150 MG, UNKNOWN (DAILY DOSE)
     Route: 048
     Dates: start: 201412
  5. VYVANSE [Suspect]
     Active Substance: LISDEXAMFETAMINE DIMESYLATE
     Indication: BINGE EATING
     Dosage: 40 MG, 1X/DAY:QD
     Route: 048
     Dates: start: 201503
  6. PROZAC [Concomitant]
     Active Substance: FLUOXETINE HYDROCHLORIDE
     Indication: DEPRESSION
     Dosage: 80 MG, UNKNOWN (DAILY DOSE)
     Route: 048
     Dates: start: 201408
  7. PROZAC [Concomitant]
     Active Substance: FLUOXETINE HYDROCHLORIDE
     Indication: ANXIETY
  8. LAMOTRIGINE. [Concomitant]
     Active Substance: LAMOTRIGINE
     Indication: ANXIETY

REACTIONS (7)
  - Disturbance in attention [Recovered/Resolved]
  - Apathy [Recovered/Resolved]
  - Drug dispensing error [Unknown]
  - Lethargy [Recovered/Resolved]
  - Suicidal ideation [Recovered/Resolved]
  - Drug ineffective [Recovered/Resolved]
  - Impulsive behaviour [Recovered/Resolved]

NARRATIVE: CASE EVENT DATE: 20151216
